FAERS Safety Report 24998670 (Version 2)
Quarter: 2025Q2

REPORT INFORMATION
  Report Type: Spontaneous
  Country: US (occurrence: US)
  Receive Date: 20250222
  Receipt Date: 20250418
  Transmission Date: 20250717
  Serious: No
  Sender: SANOFI AVENTIS
  Company Number: US-SA-2025SA043623

PATIENT
  Age: 7 Year
  Sex: Female

DRUGS (1)
  1. DUPIXENT [Suspect]
     Active Substance: DUPILUMAB
     Indication: Dermatitis atopic
     Dosage: 300 MG, Q4W
     Route: 058

REACTIONS (6)
  - Eye pain [Unknown]
  - Ocular discomfort [Unknown]
  - Foreign body in eye [Unknown]
  - Skin exfoliation [Unknown]
  - Dry eye [Unknown]
  - Rash [Unknown]
